FAERS Safety Report 12520567 (Version 1)
Quarter: 2016Q2

REPORT INFORMATION
  Report Type: Spontaneous
  Country: US (occurrence: None)
  Receive Date: 20160630
  Receipt Date: 20160630
  Transmission Date: 20160815
  Serious: Yes (Hospitalization)
  Sender: FDA-Public Use
  Company Number: None

PATIENT
  Age: 55 Year
  Sex: Male
  Weight: 88.45 kg

DRUGS (9)
  1. MULTIPURPOSE VITAMIN BIOTIN [Concomitant]
  2. OMEPRAZOLE. [Concomitant]
     Active Substance: OMEPRAZOLE
  3. AMBIEN [Concomitant]
     Active Substance: ZOLPIDEM TARTRATE
  4. XIFAXAN [Suspect]
     Active Substance: RIFAXIMIN
     Indication: ABDOMINAL DISTENSION
     Dosage: XIFAXAN?3 TABLET(S)?THREE TIMES A DAY?TAKEN BY MOUTH
     Route: 048
     Dates: start: 20160309, end: 20160320
  5. ADVAIR HFA [Concomitant]
     Active Substance: FLUTICASONE PROPIONATE\SALMETEROL XINAFOATE
  6. XIFAXAN [Suspect]
     Active Substance: RIFAXIMIN
     Indication: IRRITABLE BOWEL SYNDROME
     Dosage: XIFAXAN?3 TABLET(S)?THREE TIMES A DAY?TAKEN BY MOUTH
     Route: 048
     Dates: start: 20160309, end: 20160320
  7. XIFAXAN [Suspect]
     Active Substance: RIFAXIMIN
     Indication: FLATULENCE
     Dosage: XIFAXAN?3 TABLET(S)?THREE TIMES A DAY?TAKEN BY MOUTH
     Route: 048
     Dates: start: 20160309, end: 20160320
  8. CREON [Concomitant]
     Active Substance: PANCRELIPASE AMYLASE\PANCRELIPASE LIPASE\PANCRELIPASE PROTEASE
  9. LIPITOR [Concomitant]
     Active Substance: ATORVASTATIN CALCIUM

REACTIONS (3)
  - Polyp [None]
  - Internal haemorrhage [None]
  - Haemoglobin decreased [None]

NARRATIVE: CASE EVENT DATE: 20160323
